FAERS Safety Report 25234198 (Version 3)
Quarter: 2025Q3

REPORT INFORMATION
  Report Type: Spontaneous
  Country: EU (occurrence: EU)
  Receive Date: 20250424
  Receipt Date: 20250809
  Transmission Date: 20251021
  Serious: Yes (Other)
  Sender: ALEXION PHARMACEUTICALS
  Company Number: EU-AstraZeneca-CH-00853172AMP

PATIENT
  Sex: Female

DRUGS (1)
  1. PULMICORT TURBUHALER [Suspect]
     Active Substance: BUDESONIDE
     Dosage: 400 MICROGRAM, Q8H

REACTIONS (4)
  - Pneumonia [Unknown]
  - Malaise [Unknown]
  - Product use issue [Unknown]
  - Drug ineffective [Unknown]
